FAERS Safety Report 6203482-8 (Version None)
Quarter: 2009Q2

REPORT INFORMATION
  Report Type: 
  Country: None (occurrence: None)
  Receive Date: 20090527
  Receipt Date: 20090520
  Transmission Date: 20091009
  Serious: Yes (Hospitalization)
  Sender: FDA-Public Use
  Company Number: AU-CELGENEUS-008-21880-09051429

PATIENT
  Sex: Male

DRUGS (2)
  1. REVLIMID [Suspect]
     Indication: MULTIPLE MYELOMA
     Route: 048
     Dates: end: 20090201
  2. REVLIMID [Suspect]
     Route: 048
     Dates: start: 20090520

REACTIONS (2)
  - HAEMORRHAGE [None]
  - HYPOTENSION [None]
